FAERS Safety Report 22701257 (Version 2)
Quarter: 2025Q3

REPORT INFORMATION
  Report Type: Spontaneous
  Country: US (occurrence: US)
  Receive Date: 20230713
  Receipt Date: 20250813
  Transmission Date: 20251021
  Serious: Yes (Life-Threatening, Hospitalization, Disabling, Other)
  Sender: MYLAN
  Company Number: US-MYLANLABS-2023M1074265

PATIENT
  Age: 12 Month
  Sex: Male

DRUGS (32)
  1. DOXORUBICIN [Suspect]
     Active Substance: DOXORUBICIN
     Indication: Hepatoblastoma
  2. DOXORUBICIN [Suspect]
     Active Substance: DOXORUBICIN
     Route: 065
  3. DOXORUBICIN [Suspect]
     Active Substance: DOXORUBICIN
     Route: 065
  4. DOXORUBICIN [Suspect]
     Active Substance: DOXORUBICIN
  5. CISPLATIN [Suspect]
     Active Substance: CISPLATIN
     Indication: Hepatoblastoma
  6. CISPLATIN [Suspect]
     Active Substance: CISPLATIN
     Route: 065
  7. CISPLATIN [Suspect]
     Active Substance: CISPLATIN
     Route: 065
  8. CISPLATIN [Suspect]
     Active Substance: CISPLATIN
  9. FLUOROURACIL [Suspect]
     Active Substance: FLUOROURACIL
     Indication: Hepatoblastoma
  10. FLUOROURACIL [Suspect]
     Active Substance: FLUOROURACIL
     Route: 065
  11. FLUOROURACIL [Suspect]
     Active Substance: FLUOROURACIL
     Route: 065
  12. FLUOROURACIL [Suspect]
     Active Substance: FLUOROURACIL
  13. ETOPOSIDE [Suspect]
     Active Substance: ETOPOSIDE
     Indication: Hepatoblastoma
  14. ETOPOSIDE [Suspect]
     Active Substance: ETOPOSIDE
     Route: 065
  15. ETOPOSIDE [Suspect]
     Active Substance: ETOPOSIDE
     Route: 065
  16. ETOPOSIDE [Suspect]
     Active Substance: ETOPOSIDE
  17. VINCRISTINE [Suspect]
     Active Substance: VINCRISTINE
     Indication: Hepatoblastoma
  18. VINCRISTINE [Suspect]
     Active Substance: VINCRISTINE
     Route: 065
  19. VINCRISTINE [Suspect]
     Active Substance: VINCRISTINE
     Route: 065
  20. VINCRISTINE [Suspect]
     Active Substance: VINCRISTINE
  21. CARBOPLATIN [Suspect]
     Active Substance: CARBOPLATIN
     Indication: Hepatoblastoma
  22. CARBOPLATIN [Suspect]
     Active Substance: CARBOPLATIN
     Route: 065
  23. CARBOPLATIN [Suspect]
     Active Substance: CARBOPLATIN
     Route: 065
  24. CARBOPLATIN [Suspect]
     Active Substance: CARBOPLATIN
  25. IRINOTECAN [Suspect]
     Active Substance: IRINOTECAN
     Indication: Hepatoblastoma
  26. IRINOTECAN [Suspect]
     Active Substance: IRINOTECAN
     Route: 065
  27. IRINOTECAN [Suspect]
     Active Substance: IRINOTECAN
     Route: 065
  28. IRINOTECAN [Suspect]
     Active Substance: IRINOTECAN
  29. YTTRIUM CHLORIDE Y-90 [Concomitant]
     Active Substance: YTTRIUM CHLORIDE Y-90
     Indication: Hepatoblastoma
  30. YTTRIUM CHLORIDE Y-90 [Concomitant]
     Active Substance: YTTRIUM CHLORIDE Y-90
     Route: 065
  31. YTTRIUM CHLORIDE Y-90 [Concomitant]
     Active Substance: YTTRIUM CHLORIDE Y-90
     Route: 065
  32. YTTRIUM CHLORIDE Y-90 [Concomitant]
     Active Substance: YTTRIUM CHLORIDE Y-90

REACTIONS (7)
  - Septic shock [Unknown]
  - Cardiac arrest [Unknown]
  - Respiratory failure [Unknown]
  - Neutropenia [Unknown]
  - Drug ineffective [Unknown]
  - Deafness neurosensory [Unknown]
  - Off label use [Unknown]
